FAERS Safety Report 17685300 (Version 1)
Quarter: 2020Q2

REPORT INFORMATION
  Report Type: Spontaneous
  Country: US (occurrence: US)
  Receive Date: 20200417
  Receipt Date: 20200417
  Transmission Date: 20200714
  Serious: Yes (Other)
  Sender: FDA-Public Use
  Company Number: None

PATIENT
  Age: 77 Year
  Sex: Female

DRUGS (2)
  1. VORICONAZOLE 200MG [Suspect]
     Active Substance: VORICONAZOLE
     Indication: FUNGAL INFECTION
     Dates: start: 20200416, end: 20200417
  2. VORICONAZOLE 200MG TABLET [Concomitant]
     Active Substance: VORICONAZOLE
     Dates: start: 20200416, end: 20200417

REACTIONS (1)
  - Hallucination [None]

NARRATIVE: CASE EVENT DATE: 20200416
